FAERS Safety Report 19449957 (Version 2)
Quarter: 2021Q3

REPORT INFORMATION
  Report Type: Spontaneous
  Country: US (occurrence: US)
  Receive Date: 20210622
  Receipt Date: 20210818
  Transmission Date: 20211014
  Serious: Yes (Other)
  Sender: FDA-Public Use
  Company Number: US-BAYER-2021-162697

PATIENT
  Age: 20 Year
  Sex: Female
  Weight: 67.57 kg

DRUGS (1)
  1. MIRENA [Suspect]
     Active Substance: LEVONORGESTREL
     Indication: CONTRACEPTION
     Dosage: 20 ?G PER DAY CONTINUOUSLY
     Route: 015
     Dates: start: 20210618, end: 20210618

REACTIONS (3)
  - Complication of device insertion [None]
  - Device difficult to use [None]
  - Uterine perforation [Recovered/Resolved]

NARRATIVE: CASE EVENT DATE: 20210618
